FAERS Safety Report 4640392-1 (Version None)
Quarter: 2005Q2

REPORT INFORMATION
  Report Type: 
  Country: None (occurrence: None)
  Receive Date: 20050419
  Receipt Date: 20050406
  Transmission Date: 20051028
  Serious: Yes (Other)
  Sender: FDA-Public Use
  Company Number: USA-2005-0019640

PATIENT
  Age: 42 Year
  Sex: Female

DRUGS (5)
  1. PALLADONE [Suspect]
     Indication: PAIN
     Dosage: 12 MG/HR, Q24H
  2. NEURONTIN [Concomitant]
  3. METHADONE (METHADONE) [Concomitant]
  4. LORTAB [Concomitant]
  5. PREVACID [Concomitant]

REACTIONS (1)
  - LOSS OF CONSCIOUSNESS [None]
